FAERS Safety Report 7449693-5 (Version None)
Quarter: 2011Q2

REPORT INFORMATION
  Report Type: 
  Country: None (occurrence: None)
  Receive Date: 20110421
  Receipt Date: 20110412
  Transmission Date: 20111010
  Serious: Yes (Death, Other)
  Sender: FDA-Public Use
  Company Number: WAES 1008FRA00018

PATIENT
  Age: 54 Year
  Sex: Male

DRUGS (19)
  1. CLOPIDOGREL [Concomitant]
  2. ISENTRESS [Suspect]
     Indication: HIV INFECTION
     Dosage: 800 MG/DAILY PO
     Route: 048
     Dates: start: 20100530, end: 20100831
  3. ACYCLOVIR [Concomitant]
  4. ENALAPRIL MALEATE [Concomitant]
  5. LOPINAVIR/RITONAVIR [Concomitant]
  6. SULFAMETHOXAZOLE/TRIMETHIPRIM [Concomitant]
  7. LAMIVUDINE [Suspect]
     Indication: HIV INFECTION
     Dosage: 300 MG/DAILY PO
     Route: 048
     Dates: start: 20100630
  8. CIPROFLOXACIN [Concomitant]
  9. ATORVASTATIN CALCIUM [Concomitant]
  10. AZITHROMYCIN [Concomitant]
  11. PYRIDOXINE [Concomitant]
  12. ISONIAZID [Suspect]
     Indication: TUBERCULOSIS
     Dosage: 400 MD/DAILY PO
     Route: 048
     Dates: start: 20100522, end: 20100810
  13. TENOFOVIR DISOPROXIL FUMARATE [Suspect]
     Indication: HIV INFECTION
     Dosage: 300 MG/DAILY PO
     Route: 048
     Dates: start: 20100530
  14. ASPIRIN [Concomitant]
  15. LEUCOVORIN CALCIUM [Concomitant]
  16. PYRAZINAMIDE [Concomitant]
  17. RIFAMPIN [Suspect]
     Indication: TUBERCULOSIS
     Dosage: 600 MG/DAILY PO
     Route: 048
     Dates: start: 20100522, end: 20100810
  18. IVERMECTIN [Concomitant]
  19. OMEPRAZOLE [Concomitant]

REACTIONS (4)
  - DRUG ERUPTION [None]
  - LEUKOPENIA [None]
  - NEUTROPENIA [None]
  - MYOCARDIAL INFARCTION [None]
